FAERS Safety Report 14747109 (Version 1)
Quarter: 2018Q2

REPORT INFORMATION
  Report Type: Spontaneous
  Country: US (occurrence: US)
  Receive Date: 20180411
  Receipt Date: 20180411
  Transmission Date: 20180711
  Serious: Yes (Hospitalization, Other)
  Sender: FDA-Public Use
  Company Number: US-GILEAD-2018-0331828

PATIENT
  Age: 69 Year
  Sex: Female

DRUGS (5)
  1. PROTONIX                           /00661201/ [Concomitant]
     Active Substance: OMEPRAZOLE
  2. METFORMIN [Concomitant]
     Active Substance: METFORMIN HYDROCHLORIDE
  3. RANEXA [Suspect]
     Active Substance: RANOLAZINE
     Indication: PRODUCT USED FOR UNKNOWN INDICATION
     Dosage: 1000 MG, IN THE A.M. AND P. M.
     Route: 065
  4. NITROGLYCERIN. [Concomitant]
     Active Substance: NITROGLYCERIN
  5. RANEXA [Suspect]
     Active Substance: RANOLAZINE
     Dosage: 1000 MG, MISSED A.M. DOSE BUT TOOK P.M. DOSE
     Route: 065

REACTIONS (11)
  - Medication residue present [Not Recovered/Not Resolved]
  - Dehydration [Unknown]
  - Blood magnesium abnormal [Unknown]
  - Platelet count decreased [Unknown]
  - Liver disorder [Not Recovered/Not Resolved]
  - Angina pectoris [Unknown]
  - Fatigue [Unknown]
  - Intentional dose omission [Unknown]
  - Myocardial infarction [Unknown]
  - Blood potassium abnormal [Unknown]
  - Hepatic cirrhosis [Not Recovered/Not Resolved]

NARRATIVE: CASE EVENT DATE: 201710
